FAERS Safety Report 6310666-7 (Version None)
Quarter: 2009Q3

REPORT INFORMATION
  Report Type: 
  Country: None (occurrence: None)
  Receive Date: 20090811
  Receipt Date: 20090731
  Transmission Date: 20100115
  Serious: Yes (Death, Other)
  Sender: FDA-Public Use
  Company Number: 2009EU002426

PATIENT
  Sex: 0

DRUGS (2)
  1. TACROLIMUS [Suspect]
     Indication: LIVER TRANSPLANT
     Dosage: /D
  2. PREDNISONE TAB [Suspect]
     Indication: LIVER TRANSPLANT
     Dosage: /D

REACTIONS (4)
  - BK VIRUS INFECTION [None]
  - LIVER TRANSPLANT REJECTION [None]
  - PNEUMONIA CYTOMEGALOVIRAL [None]
  - VIRAEMIA [None]
